FAERS Safety Report 5579364-1 (Version None)
Quarter: 2008Q1

REPORT INFORMATION
  Report Type: 
  Country: None (occurrence: None)
  Receive Date: 20080102
  Receipt Date: 20071220
  Transmission Date: 20080703
  Serious: Yes (Hospitalization)
  Sender: FDA-Public Use
  Company Number: FR-ELI_LILLY_AND_COMPANY-FR200712004410

PATIENT
  Age: 86 Year
  Sex: Female

DRUGS (7)
  1. FORTEO [Suspect]
     Indication: OSTEOPOROSIS
     Dosage: 20 UG, DAILY (1/D)
     Route: 058
     Dates: start: 20060310
  2. OROCAL D(3) [Concomitant]
     Dosage: 1 D/F, DAILY (1/D)
  3. VENIRENE [Concomitant]
     Dosage: 2 D/F, DAILY (1/D)
  4. CIPROFIBRATE [Concomitant]
     Dosage: 1 D/F, DAILY (1/D)
  5. PRACTAZIN [Concomitant]
     Dosage: 2 D/F, DAILY (1/D)
  6. LEVOTHYROX [Concomitant]
     Dosage: 100 UG, DAILY (1/D)
  7. IDARAC [Concomitant]
     Dosage: 1 D/F, DAILY (1/D)

REACTIONS (3)
  - FALL [None]
  - OFF LABEL USE [None]
  - PELVIC FRACTURE [None]
